FAERS Safety Report 7634466-0 (Version None)
Quarter: 2011Q3

REPORT INFORMATION
  Report Type: 
  Country: None (occurrence: None)
  Receive Date: 20110725
  Receipt Date: 20110721
  Transmission Date: 20111222
  Serious: Yes (Death)
  Sender: FDA-Public Use
  Company Number: PHHO2011DE06158

PATIENT
  Sex: Female
  Weight: 79 kg

DRUGS (11)
  1. NEURONTIN [Concomitant]
  2. LYRICA [Concomitant]
  3. PK-MERZ [Concomitant]
  4. LOSARTAN POTASSIUM [Concomitant]
  5. SIMVAR [Concomitant]
  6. LEVOTHYROXINE SODIUM [Concomitant]
  7. MIRTAZAPINE [Concomitant]
  8. LAXOBERAL [Concomitant]
  9. METHYLPREDNISOLONE [Concomitant]
  10. FTY [Suspect]
     Indication: MULTIPLE SCLEROSIS
     Dosage: 0.5 MG, QD
     Route: 048
     Dates: start: 20100407
  11. SIMVASTATIN [Concomitant]

REACTIONS (1)
  - MYOCARDIAL INFARCTION [None]
